FAERS Safety Report 19854815 (Version 1)
Quarter: 2021Q3

REPORT INFORMATION
  Report Type: Spontaneous
  Country: US (occurrence: US)
  Receive Date: 20210917
  Receipt Date: 20210917
  Transmission Date: 20211014
  Serious: Yes (Disabling)
  Sender: FDA-Public Use
  Company Number: None

PATIENT
  Age: 17 Month
  Sex: Male

DRUGS (3)
  1. ZEOLITE A [Concomitant]
     Active Substance: ZEOLITE A
  2. MIRALAX [Suspect]
     Active Substance: POLYETHYLENE GLYCOL 3350
     Indication: CONSTIPATION
     Route: 048
     Dates: start: 20170913, end: 20170913
  3. HERB AND FOOD BASED VITAMIN C POWDER [Concomitant]

REACTIONS (13)
  - Tic [None]
  - Anger [None]
  - Eye pain [None]
  - Head banging [None]
  - Fear [None]
  - Seizure [None]
  - Crying [None]
  - Eczema [None]
  - Erythema [None]
  - Sleep terror [None]
  - Bone pain [None]
  - Excessive eye blinking [None]
  - Rash [None]

NARRATIVE: CASE EVENT DATE: 20170913
